FAERS Safety Report 6156240-7 (Version None)
Quarter: 2009Q2

REPORT INFORMATION
  Report Type: 
  Country: None (occurrence: None)
  Receive Date: 20090415
  Receipt Date: 20090318
  Transmission Date: 20091009
  Serious: Yes (Other)
  Sender: FDA-Public Use
  Company Number: US-BAYER-200910234BCC

PATIENT
  Age: 61 Year
  Sex: Female
  Weight: 77 kg

DRUGS (12)
  1. ALEVE (CAPLET) [Suspect]
     Indication: BONE PAIN
     Dosage: TOTAL DAILY DOSE: 440 MG  UNIT DOSE: 220 MG
     Route: 048
     Dates: start: 20081130, end: 20090127
  2. DIOVAN HTC [Concomitant]
     Dosage: 160/25MG
  3. ATENOLOL [Concomitant]
     Dosage: AS USED: 50 MG
  4. CRESTOR [Concomitant]
     Dosage: AS USED: 5 MG  UNIT DOSE: 20 MG
  5. METFORMIN HCL [Concomitant]
     Dosage: TOTAL DAILY DOSE: 500 MG  UNIT DOSE: 500 MG
  6. SCHIFF SUPER CALCIUM WITH VITAMIN D [Concomitant]
  7. NATURES MADE OMEGA 3 FISH OIL [Concomitant]
  8. CENTRUM SILVER [Concomitant]
  9. NORTRIPTYLINE HCL [Concomitant]
     Dosage: TOTAL DAILY DOSE: 500 MG  UNIT DOSE: 500 MG
  10. CLONAZEPAM [Concomitant]
     Dosage: UNIT DOSE: 1 MG
  11. FLUOXETINE [Concomitant]
     Dosage: TOTAL DAILY DOSE: 20 MG  UNIT DOSE: 20 MG
  12. PRILOSEC OTC [Concomitant]

REACTIONS (4)
  - ACROCHORDON [None]
  - ORAL PAIN [None]
  - OROPHARYNGEAL BLISTERING [None]
  - RASH [None]
